FAERS Safety Report 20333720 (Version 2)
Quarter: 2022Q1

REPORT INFORMATION
  Report Type: Report from Study
  Country: BE (occurrence: None)
  Receive Date: 20220113
  Receipt Date: 20220228
  Transmission Date: 20220423
  Serious: No
  Sender: FDA-Public Use
  Company Number: BE-Merck Healthcare KGaA-9291607

PATIENT
  Age: 85 Year
  Sex: Male

DRUGS (1)
  1. TEPOTINIB [Suspect]
     Active Substance: TEPOTINIB
     Indication: Product used for unknown indication
     Dosage: 1X14

REACTIONS (1)
  - Blood creatinine increased [Unknown]
